FAERS Safety Report 7236732-X (Version None)
Quarter: 2011Q1

REPORT INFORMATION
  Report Type: 
  Country: None (occurrence: None)
  Receive Date: 20110120
  Receipt Date: 20110120
  Transmission Date: 20110831
  Serious: Yes (Life-Threatening, Hospitalization, Other)
  Sender: FDA-Public Use
  Company Number: JP-PFIZER INC-2010131394

PATIENT
  Age: 79 Year
  Sex: Male
  Weight: 47 kg

DRUGS (26)
  1. LORAZEPAM [Suspect]
     Indication: INSOMNIA RELATED TO ANOTHER MENTAL CONDITION
     Dosage: 1 MG, 2X/DAY
     Route: 048
     Dates: start: 20100325, end: 20100414
  2. PLAVIX [Concomitant]
     Indication: HYPERTENSION
     Dosage: 75 MG, 1X/DAY
     Route: 048
  3. TAKEPRON [Concomitant]
     Indication: GASTRITIS
     Dosage: 15 MG, 1X/DAY
     Route: 048
  4. ZYPREXA [Suspect]
     Indication: DECREASED APPETITE
     Dosage: 1.25 MG, 1X/DAY
     Route: 048
     Dates: start: 20100409, end: 20100413
  5. ASPIRIN [Concomitant]
     Indication: CEREBRAL INFARCTION
     Dosage: 100 MG, 1X/DAY
     Route: 048
  6. SOLULACT [Concomitant]
     Indication: DEPRESSION
     Dosage: 1000 ML, 1X/DAY
     Route: 042
     Dates: start: 20100424, end: 20100427
  7. SERTRALINE HCL [Suspect]
     Indication: DEPRESSION
     Dosage: 25 MG, 1X/DAY
     Route: 048
     Dates: start: 20100325, end: 20100413
  8. TRAZODONE HYDROCHLORIDE [Concomitant]
     Indication: DEPRESSION
     Dosage: 25 MG, 1X/DAY
     Route: 048
     Dates: start: 20100422, end: 20100426
  9. BROTIZOLAM [Suspect]
     Indication: DEPRESSION
     Dosage: 0.25 MG, 1X/DAY
     Route: 048
     Dates: start: 20100325, end: 20100430
  10. MUCODYNE [Concomitant]
     Indication: CHRONIC OBSTRUCTIVE PULMONARY DISEASE
     Dosage: 500 MG, 3X/DAY
     Route: 048
  11. RISPERIDONE [Concomitant]
     Dosage: 0.5 MG, 1X/DAY
     Route: 048
     Dates: start: 20100422, end: 20100422
  12. ZOPICLONE [Concomitant]
     Indication: DEPRESSION
     Dosage: 7.5 MG, 1X/DAY
     Route: 048
     Dates: start: 20100422, end: 20100422
  13. QUAZEPAM [Suspect]
     Indication: DEPRESSION
     Dosage: 30 MG, 1X/DAY
     Route: 048
     Dates: start: 20100420, end: 20100430
  14. ENALAPRIL MALEATE [Concomitant]
     Indication: HYPERTENSION
     Dosage: 1.25 MG, 1X/DAY
     Route: 048
  15. ASCORBIC ACID [Concomitant]
     Indication: DEPRESSION
     Dosage: 500 MG, 1X/DAY
     Route: 042
     Dates: start: 20100424, end: 20100427
  16. QUAZEPAM [Suspect]
     Indication: INSOMNIA RELATED TO ANOTHER MENTAL CONDITION
     Dosage: 15 MG, 1X/DAY
     Route: 048
     Dates: start: 20100405, end: 20100419
  17. NORVASC [Concomitant]
     Indication: HYPERTENSION
     Dosage: 2.5 MG, 1X/DAY
     Route: 048
  18. TOPHARMIN [Concomitant]
     Indication: DEPRESSION
     Dosage: 50 MG, 1X/DAY
     Route: 048
     Dates: start: 20100417, end: 20100426
  19. YOKUKAN-SAN [Concomitant]
     Indication: DEPRESSION
     Dosage: 2.5 MG, 3X/DAY
     Route: 048
     Dates: start: 20100421, end: 20100430
  20. GLUCOSE [Concomitant]
     Indication: DEPRESSION
     Dosage: 40 ML, 2X/DAY
     Route: 042
     Dates: start: 20100424, end: 20100427
  21. CALCIUM POLYSTYRENE SULFONATE [Concomitant]
     Indication: HYPERKALAEMIA
     Dosage: 25 G, 2X/DAY
     Route: 048
  22. ADALAT [Concomitant]
     Indication: HYPERTENSION
     Dosage: 40 MG, 1X/DAY
     Route: 048
  23. VITAMEDIN INTRAVENOUS [Concomitant]
     Indication: DEPRESSION
     Dosage: 1 VIAL, 1X/DAY
     Route: 042
     Dates: start: 20100424, end: 20100427
  24. BROTIZOLAM [Suspect]
     Indication: INSOMNIA RELATED TO ANOTHER MENTAL CONDITION
  25. ZYPREXA [Suspect]
     Indication: DEPRESSION
     Dosage: 1.25 MG, 1X/DAY
     Route: 048
     Dates: start: 20100422, end: 20100430
  26. TRAZODONE HYDROCHLORIDE [Concomitant]
     Dosage: 50 MG, 1X/DAY
     Route: 048
     Dates: start: 20100427, end: 20100430

REACTIONS (4)
  - EXTRAPYRAMIDAL DISORDER [None]
  - PNEUMONIA ASPIRATION [None]
  - PYREXIA [None]
  - FALL [None]
